FAERS Safety Report 8047021-8 (Version None)
Quarter: 2012Q1

REPORT INFORMATION
  Report Type: 
  Country: None (occurrence: None)
  Receive Date: 20120116
  Receipt Date: 20120109
  Transmission Date: 20120608
  Serious: Yes (Hospitalization)
  Sender: FDA-Public Use
  Company Number: US-GENZYME-MOZO-1000550

PATIENT
  Sex: Male
  Weight: 80 kg

DRUGS (11)
  1. MOZOBIL [Suspect]
     Indication: HAEMATOPOIETIC STEM CELL MOBILISATION
     Dosage: UNK
     Route: 065
     Dates: start: 20110524
  2. CYTARABINE [Concomitant]
     Indication: ACUTE MYELOID LEUKAEMIA
     Dosage: 1000 MG/M2, QD
     Dates: start: 20110528, end: 20110601
  3. LISINOPRIL [Concomitant]
     Indication: CARDIOMYOPATHY
  4. MICAFUNGIN [Concomitant]
     Indication: ANTI-INFECTIVE THERAPY
  5. MOZOBIL [Suspect]
     Indication: ACUTE MYELOID LEUKAEMIA RECURRENT
     Dosage: 320 MCG/KG, QD
     Route: 042
     Dates: start: 20110530, end: 20110601
  6. MITOXANTRONE [Concomitant]
     Indication: ACUTE MYELOID LEUKAEMIA
     Dosage: 8 MG/M2, QD
     Route: 042
     Dates: start: 20110528, end: 20110601
  7. NEUPOGEN [Concomitant]
     Indication: ACUTE MYELOID LEUKAEMIA
     Dosage: 10 MCG/KG, QD
     Route: 058
     Dates: start: 20110525, end: 20110601
  8. ETOPOSIDE [Concomitant]
     Indication: ACUTE MYELOID LEUKAEMIA
     Dosage: 100 MG/M2, QD
     Dates: start: 20110528, end: 20110601
  9. VALTREX [Concomitant]
     Indication: INFECTION PROPHYLAXIS
  10. MOZOBIL [Suspect]
     Dosage: 320 MCG/KG, QD
     Route: 042
     Dates: start: 20110530, end: 20110601
  11. COREG [Concomitant]
     Indication: CARDIOMYOPATHY

REACTIONS (2)
  - FEBRILE NEUTROPENIA [None]
  - RECTAL ABSCESS [None]
